FAERS Safety Report 11383901 (Version 1)
Quarter: 2015Q3

REPORT INFORMATION
  Report Type: Spontaneous
  Country: US (occurrence: US)
  Receive Date: 20150815
  Receipt Date: 20150815
  Transmission Date: 20151125
  Serious: Yes (Other)
  Sender: FDA-Public Use
  Company Number: PHEH2015US015512

PATIENT

DRUGS (1)
  1. VALSARTAN. [Suspect]
     Active Substance: VALSARTAN
     Indication: PRODUCT USED FOR UNKNOWN INDICATION
     Dosage: UNK
     Route: 065
     Dates: start: 20150807

REACTIONS (7)
  - Blood pressure increased [Unknown]
  - Incoherent [Unknown]
  - Dysgraphia [Unknown]
  - Feeling abnormal [Unknown]
  - Disturbance in attention [Unknown]
  - Memory impairment [Unknown]
  - Headache [Unknown]
